FAERS Safety Report 25859267 (Version 1)
Quarter: 2025Q3

REPORT INFORMATION
  Report Type: Spontaneous
  Country: US (occurrence: US)
  Receive Date: 20250929
  Receipt Date: 20250929
  Transmission Date: 20251021
  Serious: No
  Sender: VERTEX
  Company Number: US-VERTEX PHARMACEUTICALS-2025-015647

PATIENT
  Age: 82 Year
  Sex: Female

DRUGS (1)
  1. JOURNAVX [Suspect]
     Active Substance: SUZETRIGINE
     Indication: Pain
     Dosage: 100 MG (02 TABLETS AS LOADING DOSE), SINGLE
     Route: 048
     Dates: start: 20250916, end: 20250916

REACTIONS (8)
  - Dyspepsia [Unknown]
  - Fatigue [Unknown]
  - Myalgia [Unknown]
  - Neck pain [Unknown]
  - Back pain [Unknown]
  - Dyspnoea [Unknown]
  - Dysphagia [Unknown]
  - Product lot number issue [Unknown]

NARRATIVE: CASE EVENT DATE: 20250916
